FAERS Safety Report 24046561 (Version 1)
Quarter: 2024Q3

REPORT INFORMATION
  Report Type: Spontaneous
  Country: US (occurrence: US)
  Receive Date: 20240703
  Receipt Date: 20240703
  Transmission Date: 20241016
  Serious: No
  Sender: SANOFI AVENTIS
  Company Number: US-SA-SAC20240627001163

PATIENT
  Age: 15 Year
  Sex: Male
  Weight: 59.42 kg

DRUGS (8)
  1. DUPIXENT [Suspect]
     Active Substance: DUPILUMAB
     Indication: Dermatitis atopic
     Dosage: 200 MG, QOW
     Route: 058
     Dates: start: 2022
  2. MELATONIN [Concomitant]
     Active Substance: MELATONIN
  3. LORATADINE [Concomitant]
     Active Substance: LORATADINE
  4. ADDERALL [Concomitant]
     Active Substance: AMPHETAMINE ASPARTATE\AMPHETAMINE SULFATE\DEXTROAMPHETAMINE SACCHARATE\DEXTROAMPHETAMINE SULFATE
  5. ABILIFY [Concomitant]
     Active Substance: ARIPIPRAZOLE
  6. PREDNISONE [Concomitant]
     Active Substance: PREDNISONE
  7. LANSOPRAZOLE [Concomitant]
     Active Substance: LANSOPRAZOLE
  8. PREDNISONE [Concomitant]
     Active Substance: PREDNISONE

REACTIONS (1)
  - Rash macular [Unknown]

NARRATIVE: CASE EVENT DATE: 20240601
